FAERS Safety Report 7486748-3 (Version None)
Quarter: 2011Q2

REPORT INFORMATION
  Report Type: 
  Country: None (occurrence: None)
  Receive Date: 20110517
  Receipt Date: 20100917
  Transmission Date: 20111010
  Serious: No
  Sender: FDA-Public Use
  Company Number: US-NOVEN-ALL1-2010-04944

PATIENT
  Sex: Female

DRUGS (1)
  1. DAYTRANA [Suspect]
     Dosage: UNK MG, UNKNOWN
     Route: 062

REACTIONS (1)
  - SOMNOLENCE [None]
